FAERS Safety Report 10559482 (Version 1)
Quarter: 2014Q4

REPORT INFORMATION
  Report Type: Spontaneous
  Country: US (occurrence: None)
  Receive Date: 20141031
  Receipt Date: 20141031
  Transmission Date: 20150529
  Serious: Yes (Death, Hospitalization)
  Sender: FDA-Public Use
  Company Number: None

PATIENT
  Age: 89 Year
  Sex: Female
  Weight: 65.4 kg

DRUGS (9)
  1. LASIX [Concomitant]
     Active Substance: FUROSEMIDE
  2. NORCO 325/5 [Concomitant]
  3. AMLODIPINE BESYLATE AND BENAZEPRIL HCL [Concomitant]
     Active Substance: AMLODIPINE BESYLATE\BENAZEPRIL HYDROCHLORIDE
  4. LISINOPRIL. [Concomitant]
     Active Substance: LISINOPRIL
  5. PRAVASTATIN [Concomitant]
     Active Substance: PRAVASTATIN\PRAVASTATIN SODIUM
  6. LOPRESSOR [Concomitant]
     Active Substance: METOPROLOL TARTRATE
  7. POTASSIUM CHLORIDE. [Concomitant]
     Active Substance: POTASSIUM CHLORIDE
  8. FERRLECIT [Suspect]
     Active Substance: SODIUM FERRIC GLUCONATE COMPLEX
     Indication: ANAEMIA
     Dosage: 250 MG?ONCER OVER 2 HOURS?INTRAVENOUS
     Route: 042
     Dates: start: 20141021, end: 20141021
  9. OMEPRAZOLE. [Concomitant]
     Active Substance: OMEPRAZOLE

REACTIONS (18)
  - Ischaemic hepatitis [None]
  - Back pain [None]
  - Hypotension [None]
  - Dizziness [None]
  - Shock [None]
  - Faecal incontinence [None]
  - Acute kidney injury [None]
  - Respiratory failure [None]
  - Dyspnoea [None]
  - Vomiting [None]
  - Multi-organ failure [None]
  - Acute myocardial infarction [None]
  - Chest pain [None]
  - Abdominal pain [None]
  - Nausea [None]
  - Infusion related reaction [None]
  - Arrhythmia [None]
  - Blood lactic acid increased [None]

NARRATIVE: CASE EVENT DATE: 20141021
